FAERS Safety Report 4511861-X (Version None)
Quarter: 2004Q4

REPORT INFORMATION
  Report Type: 
  Country: None (occurrence: None)
  Receive Date: 20041123
  Receipt Date: 20041108
  Transmission Date: 20050328
  Serious: Yes (Death)
  Sender: FDA-Public Use
  Company Number: MC200400785

PATIENT
  Age: 73 Year
  Sex: Female

DRUGS (3)
  1. ANGIOMAX [Suspect]
     Indication: THERAPEUTIC PROCEDURE
     Dosage: 0.75 MG/KG, BOLUS, IV BOLUS; SEE IMAGE
     Route: 040
     Dates: start: 20040701, end: 20040701
  2. ANGIOMAX [Suspect]
     Indication: THERAPEUTIC PROCEDURE
     Dosage: 0.75 MG/KG, BOLUS, IV BOLUS; SEE IMAGE
     Route: 040
     Dates: start: 20040701, end: 20040701
  3. EPTIFIBATIDE (EPTIFIBATIDE) [Concomitant]

REACTIONS (4)
  - INTESTINAL HAEMORRHAGE [None]
  - POST PROCEDURAL HAEMORRHAGE [None]
  - PROCEDURAL COMPLICATION [None]
  - RETROPERITONEAL HAEMORRHAGE [None]
